FAERS Safety Report 5408299-X (Version None)
Quarter: 2007Q3

REPORT INFORMATION
  Report Type: 
  Country: None (occurrence: None)
  Receive Date: 20070806
  Receipt Date: 20070806
  Transmission Date: 20080115
  Serious: Yes (Hospitalization)
  Sender: FDA-Public Use
  Company Number: None

PATIENT
  Age: 44 Year
  Sex: Male

DRUGS (2)
  1. LITHIUM CARBONATE [Suspect]
     Indication: BIPOLAR DISORDER
     Dosage: 1350MG EVERY DAY PO
     Route: 048
     Dates: start: 20060825
  2. LITHIUM CARBONATE [Suspect]
     Indication: MANIA
     Dosage: 1350MG EVERY DAY PO
     Route: 048
     Dates: start: 20060825

REACTIONS (3)
  - COORDINATION ABNORMAL [None]
  - THERAPEUTIC AGENT TOXICITY [None]
  - TREMOR [None]
